FAERS Safety Report 7354909-X (Version None)
Quarter: 2011Q1

REPORT INFORMATION
  Report Type: 
  Country: None (occurrence: None)
  Receive Date: 20110311
  Receipt Date: 20110311
  Transmission Date: 20110831
  Serious: Yes (Other)
  Sender: FDA-Public Use
  Company Number: None

PATIENT
  Sex: Female
  Weight: 58.9676 kg

DRUGS (2)
  1. CITALOPRAM HYDROBROMIDE [Suspect]
     Indication: GENERALISED ANXIETY DISORDER
     Dosage: 1 TAB DAILY PO; 1/2 TAB DAILY PO
     Route: 048
     Dates: start: 20101115, end: 20110309
  2. CITALOPRAM HYDROBROMIDE [Suspect]
     Indication: DEPRESSION
     Dosage: 1 TAB DAILY PO; 1/2 TAB DAILY PO
     Route: 048
     Dates: start: 20101115, end: 20110309

REACTIONS (4)
  - ANXIETY [None]
  - NAUSEA [None]
  - DEPRESSION [None]
  - ABDOMINAL DISCOMFORT [None]
